FAERS Safety Report 9199337 (Version 1)
Quarter: 2013Q1

REPORT INFORMATION
  Report Type: Spontaneous
  Country: US (occurrence: US)
  Receive Date: 20130329
  Receipt Date: 20130329
  Transmission Date: 20140127
  Serious: No
  Sender: FDA-Public Use
  Company Number: US-PFIZER INC-2013096300

PATIENT
  Age: 65 Year
  Sex: Female
  Weight: 61.22 kg

DRUGS (3)
  1. ADVIL PM [Suspect]
     Indication: DYSPEPSIA
     Dosage: 600 MG, TWO TIMES A DAY
     Dates: start: 20130319, end: 20130321
  2. ADVIL PM [Suspect]
     Indication: INFLAMMATION
  3. PRILOSEC [Concomitant]
     Dosage: 20.6 MG, DAILY
     Dates: start: 20130311

REACTIONS (3)
  - Intentional drug misuse [Unknown]
  - Dizziness [Recovered/Resolved]
  - Paraesthesia [Recovered/Resolved]
